FAERS Safety Report 13004717 (Version 3)
Quarter: 2016Q4

REPORT INFORMATION
  Report Type: Spontaneous
  Country: JP (occurrence: JP)
  Receive Date: 20161207
  Receipt Date: 20161213
  Transmission Date: 20170207
  Serious: Yes (Other)
  Sender: FDA-Public Use
  Company Number: JP-ROCHE-1864579

PATIENT
  Age: 80 Year
  Sex: Female

DRUGS (3)
  1. CARBOPLATIN. [Concomitant]
     Active Substance: CARBOPLATIN
     Indication: LUNG NEOPLASM MALIGNANT
     Dosage: DOSAGE IS UNCERTAIN.
     Route: 041
     Dates: start: 201604
  2. AVASTIN [Suspect]
     Active Substance: BEVACIZUMAB
     Indication: LUNG NEOPLASM MALIGNANT
     Dosage: DOSAGE IS UNCERTAIN.
     Route: 041
     Dates: start: 201604
  3. PEMETREXED SODIUM HYDRATE [Suspect]
     Active Substance: PEMETREXED
     Indication: LUNG NEOPLASM MALIGNANT
     Dosage: DOSAGE IS UNCERTAIN.
     Route: 041
     Dates: start: 201604

REACTIONS (3)
  - Cytomegalovirus enterocolitis [Unknown]
  - Altered state of consciousness [Unknown]
  - Renal impairment [Unknown]
